FAERS Safety Report 5238615-3 (Version None)
Quarter: 2007Q1

REPORT INFORMATION
  Report Type: 
  Country: None (occurrence: None)
  Receive Date: 20070214
  Receipt Date: 20070214
  Transmission Date: 20070707
  Serious: Yes (Hospitalization)
  Sender: FDA-Public Use
  Company Number: None

PATIENT
  Age: 30 Year
  Sex: Male
  Weight: 146 kg

DRUGS (1)
  1. HALOPERIDOL [Suspect]
     Indication: SCHIZOAFFECTIVE DISORDER
     Dates: start: 20060905

REACTIONS (1)
  - AKATHISIA [None]
